FAERS Safety Report 22263839 (Version 1)
Quarter: 2023Q2

REPORT INFORMATION
  Report Type: Spontaneous
  Country: US (occurrence: US)
  Receive Date: 20230428
  Receipt Date: 20230428
  Transmission Date: 20230721
  Serious: No
  Sender: FDA-Public Use
  Company Number: US-TEVA-2023-US-2876167

PATIENT
  Age: 65 Year
  Sex: Female

DRUGS (1)
  1. LIOTHYRONINE SODIUM [Suspect]
     Active Substance: LIOTHYRONINE SODIUM
     Indication: Thyroid disorder
     Route: 065

REACTIONS (3)
  - Adverse drug reaction [Unknown]
  - Allergic reaction to excipient [Unknown]
  - Drug hypersensitivity [Unknown]
